FAERS Safety Report 6150669-9 (Version None)
Quarter: 2009Q2

REPORT INFORMATION
  Report Type: 
  Country: None (occurrence: None)
  Receive Date: 20090409
  Receipt Date: 20090401
  Transmission Date: 20091009
  Serious: Yes (Other)
  Sender: FDA-Public Use
  Company Number: US-WYE-H08786109

PATIENT
  Sex: Female

DRUGS (4)
  1. EFFEXOR XR [Suspect]
  2. EFFEXOR XR [Suspect]
     Dates: start: 20090101
  3. CYMBALTA [Concomitant]
     Dosage: UNKNOWN
  4. KLONOPIN [Concomitant]
     Dosage: ^NO MORE THAN 3 ON A BAD DAY^

REACTIONS (6)
  - ANXIETY [None]
  - CRYING [None]
  - DEPRESSION [None]
  - DRUG EFFECT DECREASED [None]
  - DRUG WITHDRAWAL SYNDROME [None]
  - SUICIDAL IDEATION [None]
